FAERS Safety Report 14543763 (Version 3)
Quarter: 2018Q1

REPORT INFORMATION
  Report Type: Report from Study
  Country: US (occurrence: US)
  Receive Date: 20180216
  Receipt Date: 20180327
  Transmission Date: 20180509
  Serious: Yes (Other)
  Sender: FDA-Public Use
  Company Number: US-ACTELION-A-NJ2018-167600

PATIENT
  Age: 70 Year
  Sex: Male
  Weight: 65.76 kg

DRUGS (3)
  1. OPSUMIT [Suspect]
     Active Substance: MACITENTAN
     Indication: PULMONARY ARTERIAL HYPERTENSION
     Dosage: 10 MG, QD
     Route: 048
  2. UPTRAVI [Suspect]
     Active Substance: SELEXIPAG
     Indication: PULMONARY ARTERIAL HYPERTENSION
     Dosage: 200 MCG, BID
     Route: 048
  3. SILDENAFIL. [Concomitant]
     Active Substance: SILDENAFIL

REACTIONS (10)
  - Tinnitus [Unknown]
  - Diarrhoea [Unknown]
  - Loss of consciousness [Unknown]
  - Contusion [Unknown]
  - Peripheral swelling [Unknown]
  - Facial bones fracture [Unknown]
  - Fall [Unknown]
  - Pain in jaw [Unknown]
  - Suture insertion [Unknown]
  - Neck pain [Unknown]

NARRATIVE: CASE EVENT DATE: 20180122
